FAERS Safety Report 5873837-X (Version None)
Quarter: 2008Q3

REPORT INFORMATION
  Report Type: 
  Country: None (occurrence: None)
  Receive Date: 20080829
  Receipt Date: 20080821
  Transmission Date: 20090109
  Serious: Yes (Hospitalization)
  Sender: FDA-Public Use
  Company Number: 2008SP017067

PATIENT
  Age: 33 Year
  Sex: Female

DRUGS (1)
  1. INTRON A [Suspect]
     Indication: HEPATITIS B
     Dosage: 3 MIU; QOD
     Dates: start: 20060401

REACTIONS (3)
  - DIABETIC KETOACIDOSIS [None]
  - TYPE 1 DIABETES MELLITUS [None]
  - WEIGHT DECREASED [None]
